FAERS Safety Report 19310357 (Version 1)
Quarter: 2021Q2

REPORT INFORMATION
  Report Type: Spontaneous
  Country: KR (occurrence: KR)
  Receive Date: 20210526
  Receipt Date: 20210526
  Transmission Date: 20210717
  Serious: Yes (Other)
  Sender: FDA-Public Use
  Company Number: KR-GLAXOSMITHKLINE-KR2021APC107817

PATIENT
  Age: 62 Year
  Sex: Male
  Weight: 72 kg

DRUGS (2)
  1. HEPSERA [Suspect]
     Active Substance: ADEFOVIR DIPIVOXIL
     Indication: PRODUCT USED FOR UNKNOWN INDICATION
     Dosage: 10 MG
     Route: 048
  2. LAMIVUDINE HBV [Suspect]
     Active Substance: LAMIVUDINE
     Indication: PRODUCT USED FOR UNKNOWN INDICATION
     Dosage: UNK

REACTIONS (19)
  - Azotaemia [Unknown]
  - Fracture [Unknown]
  - Osteomalacia [Recovering/Resolving]
  - Rib fracture [Unknown]
  - Renal tubular disorder [Recovering/Resolving]
  - Glycosuria [Recovering/Resolving]
  - Back pain [Recovering/Resolving]
  - Growth retardation [Recovering/Resolving]
  - Proteinuria [Recovering/Resolving]
  - Bone pain [Recovering/Resolving]
  - Blood creatinine increased [Unknown]
  - Musculoskeletal pain [Recovering/Resolving]
  - Bone disorder [Recovering/Resolving]
  - Tenderness [Recovering/Resolving]
  - Drug resistance [Recovering/Resolving]
  - Arthralgia [Recovering/Resolving]
  - Blood alkaline phosphatase increased [Recovering/Resolving]
  - Albuminuria [Recovering/Resolving]
  - Hypophosphataemia [Recovering/Resolving]
